FAERS Safety Report 5173800-0 (Version None)
Quarter: 2006Q4

REPORT INFORMATION
  Report Type: 
  Country: None (occurrence: None)
  Receive Date: 20061214
  Receipt Date: 20061212
  Transmission Date: 20070319
  Serious: Yes (Other)
  Sender: FDA-Public Use
  Company Number: US-GLAXOSMITHKLINE-A0631328A

PATIENT
  Age: 55 Year
  Sex: Male

DRUGS (3)
  1. ADVAIR DISKUS 100/50 [Suspect]
     Indication: WHEEZING
     Dosage: 1PUFF TWICE PER DAY
     Route: 055
  2. ALBUTEROL [Concomitant]
  3. LEVAQUIN [Concomitant]

REACTIONS (5)
  - CHEST PAIN [None]
  - DYSURIA [None]
  - NASOPHARYNGITIS [None]
  - PLEURISY [None]
  - PNEUMONIA [None]
